FAERS Safety Report 8562730-X (Version None)
Quarter: 2012Q3

REPORT INFORMATION
  Report Type: 
  Country: None (occurrence: None)
  Receive Date: 20120802
  Receipt Date: 20120716
  Transmission Date: 20120928
  Serious: No
  Sender: FDA-Public Use
  Company Number: US-AMGEN-USASP2012044111

PATIENT
  Age: 5 Year
  Sex: Female

DRUGS (2)
  1. EMLA [Concomitant]
     Dosage: UNK
  2. ENBREL [Suspect]
     Indication: JUVENILE ARTHRITIS
     Dosage: 0.8ML FROM THE 25 MG VIAL ONCE WEEKLY
     Route: 058
     Dates: start: 20090101

REACTIONS (1)
  - HYPOAESTHESIA [None]
